FAERS Safety Report 8376189-9 (Version None)
Quarter: 2012Q2

REPORT INFORMATION
  Report Type: 
  Country: None (occurrence: None)
  Receive Date: 20120522
  Receipt Date: 20120516
  Transmission Date: 20120825
  Serious: Yes (Hospitalization)
  Sender: FDA-Public Use
  Company Number: US-BAYER-2012-047269

PATIENT
  Age: 18 Year
  Sex: Female

DRUGS (4)
  1. FLOVENT [Concomitant]
  2. DROSPIRENONE AND ETHINYL ESTRADIOL [Suspect]
     Dosage: UNK
     Dates: start: 20090301, end: 20090501
  3. ALLEGRA-D 12 HOUR [Concomitant]
  4. SINGULAIR [Concomitant]

REACTIONS (1)
  - DEEP VEIN THROMBOSIS [None]
